FAERS Safety Report 6728414-5 (Version None)
Quarter: 2010Q2

REPORT INFORMATION
  Report Type: 
  Country: None (occurrence: None)
  Receive Date: 20100517
  Receipt Date: 20100506
  Transmission Date: 20101027
  Serious: Yes (Hospitalization, Other)
  Sender: FDA-Public Use
  Company Number: GB-PFIZER INC-2010021377

PATIENT
  Age: 68 Year
  Sex: Female
  Weight: 78 kg

DRUGS (2)
  1. EPIRUBICIN HYDROCHLORIDE [Suspect]
     Indication: BREAST CANCER METASTATIC
     Dosage: 90 MG/M2, 3 X WEEKLY
     Route: 042
     Dates: start: 20071201, end: 20080201
  2. CYCLOPHOSPHAMIDE [Suspect]
     Indication: BREAST CANCER METASTATIC
     Dosage: 600 MG/M2, UNK
     Route: 042
     Dates: start: 20071201, end: 20080201

REACTIONS (5)
  - BLOOD BILIRUBIN INCREASED [None]
  - CLOSTRIDIUM DIFFICILE COLITIS [None]
  - FATIGUE [None]
  - NEUTROPENIA [None]
  - PANCYTOPENIA [None]
